FAERS Safety Report 5974823-1 (Version None)
Quarter: 2008Q4

REPORT INFORMATION
  Report Type: 
  Country: None (occurrence: None)
  Receive Date: 20081201
  Receipt Date: 20081126
  Transmission Date: 20090506
  Serious: Yes (Other)
  Sender: FDA-Public Use
  Company Number: CA-PFIZER INC-2008100598

PATIENT
  Sex: Male

DRUGS (4)
  1. ZELDOX (CAPSULES) [Suspect]
     Route: 048
  2. PCP [Concomitant]
  3. CANNABIS [Concomitant]
  4. ALL OTHER THERAPEUTIC PRODUCTS [Concomitant]

REACTIONS (3)
  - DYSTONIA [None]
  - OROMANDIBULAR DYSTONIA [None]
  - RESPIRATORY ARREST [None]
